FAERS Safety Report 18868499 (Version 1)
Quarter: 2021Q1

REPORT INFORMATION
  Report Type: Spontaneous
  Country: CA (occurrence: CA)
  Receive Date: 20210209
  Receipt Date: 20210209
  Transmission Date: 20210420
  Serious: Yes (Other)
  Sender: FDA-Public Use
  Company Number: CA-BAYER-2021-050516

PATIENT
  Age: 45 Year
  Sex: Female

DRUGS (1)
  1. GADOVIST [Suspect]
     Active Substance: GADOBUTROL
     Indication: MAGNETIC RESONANCE IMAGING
     Route: 042

REACTIONS (3)
  - Dizziness [Unknown]
  - Hyperhidrosis [Unknown]
  - Presyncope [None]
